FAERS Safety Report 14623749 (Version 1)
Quarter: 2018Q1

REPORT INFORMATION
  Report Type: Report from Study
  Country: None (occurrence: GB)
  Receive Date: 20180312
  Receipt Date: 20180312
  Transmission Date: 20180509
  Serious: Yes (Death)
  Sender: FDA-Public Use
  Company Number: GB-ABBVIE-18K-167-2284241-00

PATIENT
  Sex: Male

DRUGS (1)
  1. HUMIRA [Suspect]
     Active Substance: ADALIMUMAB
     Indication: RHEUMATOID ARTHRITIS
     Route: 058
     Dates: start: 20040223, end: 20040615

REACTIONS (4)
  - Parkinson^s disease [Fatal]
  - Pneumonia aspiration [Fatal]
  - Intestinal pseudo-obstruction [Fatal]
  - Chronic obstructive pulmonary disease [Fatal]
